FAERS Safety Report 10205728 (Version 3)
Quarter: 2014Q2

REPORT INFORMATION
  Report Type: Report from Study
  Country: US (occurrence: US)
  Receive Date: 20140530
  Receipt Date: 20140626
  Transmission Date: 20141212
  Serious: Yes (Hospitalization)
  Sender: FDA-Public Use
  Company Number: US-ROCHE-1410344

PATIENT
  Age: 36 Year
  Sex: Female
  Weight: 99 kg

DRUGS (7)
  1. XOLAIR [Suspect]
     Indication: URTICARIA
     Route: 058
     Dates: start: 20140514, end: 20140514
  2. MONTELUKAST [Concomitant]
     Indication: URTICARIA
     Route: 048
  3. FUROSEMIDE [Concomitant]
     Route: 048
  4. BECLOMETHASONE [Concomitant]
     Indication: ASTHMA
     Dosage: 2 PUFFS
     Route: 048
  5. CETIRIZINE [Concomitant]
     Indication: URTICARIA
     Route: 048
  6. ZANTAC [Concomitant]
     Indication: URTICARIA
     Route: 048
  7. ALBUTEROL [Concomitant]

REACTIONS (1)
  - Anaphylactic reaction [Recovered/Resolved]
